FAERS Safety Report 5295919-6 (Version None)
Quarter: 2007Q2

REPORT INFORMATION
  Report Type: 
  Country: None (occurrence: None)
  Receive Date: 20070413
  Receipt Date: 20070410
  Transmission Date: 20071010
  Serious: Yes (Hospitalization)
  Sender: FDA-Public Use
  Company Number: 2007UW07049

PATIENT
  Age: 36 Year
  Sex: Female
  Weight: 127 kg

DRUGS (4)
  1. ACCOLATE [Suspect]
     Indication: ASTHMA
     Route: 048
  2. SYNTHROID [Concomitant]
  3. LERECA [Concomitant]
  4. ZOLOFT [Concomitant]

REACTIONS (3)
  - OVERDOSE [None]
  - SELF INJURIOUS BEHAVIOUR [None]
  - SUICIDAL IDEATION [None]
